FAERS Safety Report 9368769 (Version 1)
Quarter: 2013Q2

REPORT INFORMATION
  Report Type: Spontaneous
  Country: GB (occurrence: GB)
  Receive Date: 20130626
  Receipt Date: 20130626
  Transmission Date: 20140414
  Serious: Yes (Death)
  Sender: FDA-Public Use
  Company Number: PHFR2013GB003555

PATIENT
  Age: 51 Year
  Sex: Female

DRUGS (9)
  1. CLOMIPRAMINE [Suspect]
     Indication: DEPRESSION
     Dosage: UNK UKN, UNK
  2. AMISULPRIDE [Suspect]
     Indication: SCHIZOPHRENIA
     Dosage: UNK UKN, UNK
  3. ZAPONEX [Suspect]
     Indication: SUICIDAL BEHAVIOUR
     Dosage: UNK UKN, UNK
     Route: 048
     Dates: start: 20040922
  4. ZOPICLONE [Concomitant]
     Indication: ANXIETY
     Dosage: UNK UKN, UNK
  5. ZOPICLONE [Concomitant]
     Indication: INSOMNIA
     Dates: end: 20121211
  6. PROCYCLIDINE [Concomitant]
     Indication: PARKINSONISM
     Dosage: UNK UKN, UNK
  7. PROCYCLIDINE [Concomitant]
     Indication: EXTRAPYRAMIDAL DISORDER
     Dates: end: 20121211
  8. GLICLAZIDE [Concomitant]
     Indication: DIABETES MELLITUS
     Dosage: UNK UKN, UNK
  9. RANITIDINE [Concomitant]
     Indication: GASTRIC PH DECREASED
     Dosage: UNK UKN, UNK

REACTIONS (3)
  - Fall [Fatal]
  - Head injury [Fatal]
  - Toxicity to various agents [Fatal]
